FAERS Safety Report 10007787 (Version 1)
Quarter: 2014Q1

REPORT INFORMATION
  Report Type: Spontaneous
  Country: US (occurrence: US)
  Receive Date: 20140313
  Receipt Date: 20140313
  Transmission Date: 20141002
  Serious: No
  Sender: FDA-Public Use
  Company Number: US-GILEAD-2013-0069910

PATIENT
  Age: 50 Year
  Sex: Female

DRUGS (1)
  1. LETAIRIS [Suspect]
     Indication: PRODUCT USED FOR UNKNOWN INDICATION
     Dosage: 5 MG, UNK
     Dates: start: 20130206

REACTIONS (5)
  - Somnolence [Unknown]
  - Skin discolouration [Unknown]
  - Ocular hyperaemia [Unknown]
  - Palpitations [Unknown]
  - Dizziness [Unknown]
